FAERS Safety Report 18679220 (Version 1)
Quarter: 2020Q4

REPORT INFORMATION
  Report Type: Spontaneous
  Country: US (occurrence: US)
  Receive Date: 20201229
  Receipt Date: 20201229
  Transmission Date: 20210114
  Serious: Yes (Death, Hospitalization, Other)
  Sender: FDA-Public Use
  Company Number: US-ASTRAZENECA-2020SF74326

PATIENT
  Age: 57 Year
  Sex: Female

DRUGS (8)
  1. PROPRANOLOL [Suspect]
     Active Substance: PROPRANOLOL HYDROCHLORIDE
     Route: 048
  2. NAPROXEN. [Suspect]
     Active Substance: NAPROXEN
     Route: 048
  3. BUDESONIDE/FOMOTEROL [Suspect]
     Active Substance: BUDESONIDE\FORMOTEROL
     Route: 048
  4. HALOPERIDOL. [Suspect]
     Active Substance: HALOPERIDOL
     Route: 048
  5. MIRTAZAPINE. [Suspect]
     Active Substance: MIRTAZAPINE
     Route: 048
  6. TRAMADOL. [Suspect]
     Active Substance: TRAMADOL
     Route: 048
  7. MELOXICAM. [Suspect]
     Active Substance: MELOXICAM
     Route: 048
  8. VITAMIN D [Suspect]
     Active Substance: VITAMIN D NOS
     Route: 048

REACTIONS (3)
  - Toxicity to various agents [Fatal]
  - Cardio-respiratory arrest [Unknown]
  - Completed suicide [Fatal]
